FAERS Safety Report 21043019 (Version 2)
Quarter: 2024Q2

REPORT INFORMATION
  Report Type: Spontaneous
  Country: JP (occurrence: JP)
  Receive Date: 20220705
  Receipt Date: 20240517
  Transmission Date: 20240715
  Serious: Yes (Other)
  Sender: FDA-Public Use
  Company Number: JP-ASTELLAS-2019US042993

PATIENT
  Age: 68 Year
  Sex: Male

DRUGS (2)
  1. BENDAMUSTINE HYDROCHLORIDE [Suspect]
     Active Substance: BENDAMUSTINE HYDROCHLORIDE
     Indication: Waldenstrom^s macroglobulinaemia
     Dosage: TIME INTERVAL: CYCLICAL: DOSAGE TEXT:  (ON DAY 2-3)
     Route: 042
  2. RITUXIMAB [Suspect]
     Active Substance: RITUXIMAB
     Indication: Waldenstrom^s macroglobulinaemia
     Dosage: TIME INTERVAL: CYCLICAL: DOSAGE TEXT:  (ON DAY1)
     Route: 041

REACTIONS (2)
  - Septic shock [Recovering/Resolving]
  - Impetigo [Unknown]
